FAERS Safety Report 17161164 (Version 1)
Quarter: 2019Q4

REPORT INFORMATION
  Report Type: Spontaneous
  Country: US (occurrence: US)
  Receive Date: 20191216
  Receipt Date: 20191216
  Transmission Date: 20200122
  Serious: Yes (Life-Threatening)
  Sender: FDA-Public Use
  Company Number: US-TEVA-2019-US-1142060

PATIENT
  Sex: Male

DRUGS (2)
  1. AMIODARONE HYDROCHLORIDE TEVA [Suspect]
     Active Substance: AMIODARONE HYDROCHLORIDE
     Indication: ATRIAL FIBRILLATION
     Route: 048
     Dates: start: 201505
  2. AMIODARONE HYDROCHLORIDE. [Suspect]
     Active Substance: AMIODARONE HYDROCHLORIDE
     Indication: ATRIAL FIBRILLATION
     Route: 048
     Dates: start: 201505

REACTIONS (13)
  - Fatigue [Unknown]
  - Dyspnoea [Unknown]
  - Oedema [Unknown]
  - Lung disorder [Unknown]
  - Blindness [Unknown]
  - Wheezing [Unknown]
  - Asthenia [Unknown]
  - Weight decreased [Unknown]
  - Off label use [Unknown]
  - Amnesia [Unknown]
  - Dizziness [Unknown]
  - Vision blurred [Unknown]
  - Chest pain [Unknown]

NARRATIVE: CASE EVENT DATE: 201601
